FAERS Safety Report 5081228-7 (Version None)
Quarter: 2006Q3

REPORT INFORMATION
  Report Type: 
  Country: None (occurrence: None)
  Receive Date: 20060720
  Receipt Date: 20060313
  Transmission Date: 20061208
  Serious: Yes (Other)
  Sender: FDA-Public Use
  Company Number: 2006035647

PATIENT
  Age: 50 Year
  Sex: Female
  Weight: 72.5755 kg

DRUGS (6)
  1. CELEBREX [Suspect]
     Indication: ARTHRITIS
     Dosage: (2 IN 1 D)
  2. METHADONE HCL [Concomitant]
  3. AMITRIPTYLINE HCL [Concomitant]
  4. EFFEXOR [Concomitant]
  5. PIROXICAM [Concomitant]
  6. PRILOSEC [Concomitant]

REACTIONS (5)
  - ARTHRITIS [None]
  - CONDITION AGGRAVATED [None]
  - DIABETES MELLITUS [None]
  - HEPATITIS C [None]
  - LOWER LIMB DEFORMITY [None]
